FAERS Safety Report 8285898-1 (Version None)
Quarter: 2012Q2

REPORT INFORMATION
  Report Type: 
  Country: None (occurrence: None)
  Receive Date: 20120414
  Receipt Date: 20120322
  Transmission Date: 20120825
  Serious: Yes (Death, Hospitalization)
  Sender: FDA-Public Use
  Company Number: PHHY2012AU030848

PATIENT
  Age: 40 Year
  Sex: Female

DRUGS (3)
  1. EVEROLIMUS [Suspect]
     Indication: RENAL FAILURE CHRONIC
  2. TACROLIMUS [Concomitant]
     Dosage: UNK UKN, UNK
  3. STEROIDS NOS [Concomitant]
     Dosage: UNK UKN, UNK

REACTIONS (2)
  - PNEUMOCYSTIS JIROVECI PNEUMONIA [None]
  - RESPIRATORY FAILURE [None]
